FAERS Safety Report 7271507-7 (Version None)
Quarter: 2011Q1

REPORT INFORMATION
  Report Type: 
  Country: None (occurrence: None)
  Receive Date: 20110203
  Receipt Date: 20101227
  Transmission Date: 20110831
  Serious: Yes (Hospitalization, Other)
  Sender: FDA-Public Use
  Company Number: US-BAYER-201010647NA

PATIENT
  Sex: Female
  Weight: 109 kg

DRUGS (5)
  1. HYDROCODONE [Concomitant]
  2. YASMIN [Suspect]
     Indication: PRODUCT USED FOR UNKNOWN INDICATION
     Route: 048
  3. DARVOCET-N 100 [Concomitant]
  4. YAZ [Suspect]
     Indication: PRODUCT USED FOR UNKNOWN INDICATION
  5. NAPROXEN [Concomitant]
     Dosage: 500 MG, UNK
     Dates: start: 20090718

REACTIONS (8)
  - ANAEMIA [None]
  - DUODENITIS [None]
  - CHOLELITHIASIS [None]
  - JAUNDICE [None]
  - PAIN [None]
  - NAUSEA [None]
  - OESOPHAGITIS [None]
  - DUODENAL ULCER [None]
